FAERS Safety Report 9970079 (Version 1)
Quarter: 2014Q1

REPORT INFORMATION
  Report Type: Spontaneous
  Country: FR (occurrence: None)
  Receive Date: 20140304
  Receipt Date: 20140304
  Transmission Date: 20141002
  Serious: Yes (Hospitalization)
  Sender: FDA-Public Use
  Company Number: DSM-2014-00167

PATIENT
  Age: 65 Year
  Sex: Male

DRUGS (2)
  1. SEVIKAR [Suspect]
     Indication: HYPERTENSION
     Route: 048
     Dates: start: 20131218, end: 20131223
  2. ZANEXTRA [Concomitant]

REACTIONS (2)
  - Eczema [None]
  - Hypertensive crisis [None]
